FAERS Safety Report 12998681 (Version 2)
Quarter: 2016Q4

REPORT INFORMATION
  Report Type: Spontaneous
  Country: HU (occurrence: HU)
  Receive Date: 20161205
  Receipt Date: 20161215
  Transmission Date: 20170207
  Serious: Yes (Death)
  Sender: FDA-Public Use
  Company Number: HU-PFIZER INC-2016489142

PATIENT
  Age: 19 Year
  Sex: Male

DRUGS (3)
  1. SUTENT [Suspect]
     Active Substance: SUNITINIB MALATE
     Dosage: 50 MG, CYCLIC (2ND CYCLE, ONCE A DAY, ACCORDING TO 4/2 SCHEMA)
     Route: 048
     Dates: start: 20160916
  2. SUTENT [Suspect]
     Active Substance: SUNITINIB MALATE
     Dosage: 50 MG, CYCLIC (3RD CYCLE, ONCE A DAY, ACCORDING TO 4/2 SCHEMA)
     Route: 048
     Dates: start: 20161028
  3. SUTENT [Suspect]
     Active Substance: SUNITINIB MALATE
     Indication: RENAL CANCER
     Dosage: UNK, CYCLIC (1ST CYCLE)

REACTIONS (2)
  - Neoplasm progression [Fatal]
  - Insomnia [Not Recovered/Not Resolved]

NARRATIVE: CASE EVENT DATE: 20161014
